FAERS Safety Report 18842310 (Version 1)
Quarter: 2021Q1

REPORT INFORMATION
  Report Type: Spontaneous
  Country: PL (occurrence: PL)
  Receive Date: 20210204
  Receipt Date: 20210204
  Transmission Date: 20210419
  Serious: Yes (Hospitalization, Other)
  Sender: FDA-Public Use
  Company Number: PL-ACCORD-216151

PATIENT
  Age: 66 Year
  Sex: Female

DRUGS (4)
  1. VALPROIC ACID. [Suspect]
     Active Substance: VALPROIC ACID
     Indication: EPILEPSY
     Dosage: UNK
  2. LEVETIRACETAM. [Suspect]
     Active Substance: LEVETIRACETAM
     Indication: EPILEPSY
  3. IMMUNOGLOBULINS [Concomitant]
     Indication: EPILEPSY
     Dosage: UNK
  4. AMLODIPINE [Suspect]
     Active Substance: AMLODIPINE BESYLATE
     Indication: HYPERTENSION

REACTIONS (6)
  - Memory impairment [Unknown]
  - Epilepsy [Not Recovered/Not Resolved]
  - Lung neoplasm malignant [Unknown]
  - Drug ineffective [Unknown]
  - Disorientation [Unknown]
  - Limbic encephalitis [Unknown]
